FAERS Safety Report 18384756 (Version 8)
Quarter: 2021Q2

REPORT INFORMATION
  Report Type: Spontaneous
  Country: PT (occurrence: PT)
  Receive Date: 20201015
  Receipt Date: 20210505
  Transmission Date: 20210717
  Serious: Yes (Life-Threatening, Hospitalization, Other)
  Sender: FDA-Public Use
  Company Number: NVSC2020PT274724

PATIENT
  Age: 40 Year
  Sex: Female

DRUGS (4)
  1. CIPROFLOXACIN. [Suspect]
     Active Substance: CIPROFLOXACIN
     Indication: RESPIRATORY TRACT INFECTION
     Dosage: 500 MG, BID
     Route: 065
  2. CIPROFLOXACIN. [Suspect]
     Active Substance: CIPROFLOXACIN
     Dosage: 500 MG, QOD
     Route: 065
  3. CIPROFLOXACIN. [Suspect]
     Active Substance: CIPROFLOXACIN
     Dosage: 500 MG, Q12H
     Route: 065
  4. CIPROFLOXACIN. [Suspect]
     Active Substance: CIPROFLOXACIN
     Dosage: 1000 MG QD, EACH 12 HOURS
     Route: 048

REACTIONS (8)
  - Metabolic acidosis [Recovered/Resolved]
  - Proteinuria [Recovered/Resolved]
  - Acute kidney injury [Recovered/Resolved]
  - Dyspnoea [Recovered/Resolved]
  - Nephropathy [Recovered/Resolved]
  - Oedema peripheral [Recovered/Resolved]
  - Haematuria [Recovered/Resolved]
  - Oliguria [Recovered/Resolved]
